FAERS Safety Report 18582122 (Version 1)
Quarter: 2020Q4

REPORT INFORMATION
  Report Type: Spontaneous
  Country: AU (occurrence: AU)
  Receive Date: 20201204
  Receipt Date: 20201204
  Transmission Date: 20210114
  Serious: Yes (Other)
  Sender: FDA-Public Use
  Company Number: AU-PURDUE-USA-2020-0180661

PATIENT
  Age: 55 Year
  Sex: Female

DRUGS (13)
  1. TOBRAMYCIN. [Concomitant]
     Active Substance: TOBRAMYCIN
     Dosage: UNK
  2. CHARCOAL [Concomitant]
     Active Substance: ACTIVATED CHARCOAL
     Dosage: UNK
  3. INSULIN [Concomitant]
     Active Substance: INSULIN NOS
     Dosage: UNK
  4. TEMAZEPAM. [Suspect]
     Active Substance: TEMAZEPAM
     Indication: PRODUCT USED FOR UNKNOWN INDICATION
     Dosage: UNK
     Route: 065
  5. OXAZEPAM. [Suspect]
     Active Substance: OXAZEPAM
     Indication: PRODUCT USED FOR UNKNOWN INDICATION
     Dosage: UNK
     Route: 065
  6. ESOMEPRAZOLE. [Concomitant]
     Active Substance: ESOMEPRAZOLE MAGNESIUM
     Dosage: UNK
  7. CALCIUM CHLORIDE DIHYDRATE [Concomitant]
     Active Substance: CALCIUM CHLORIDE
     Dosage: UNK
  8. HYDROCORTISONE. [Concomitant]
     Active Substance: HYDROCORTISONE
     Dosage: UNK
  9. DANTROLENE                         /00338602/ [Concomitant]
  10. AMOXYCILLIN                        /00756801/ [Concomitant]
  11. OXYCODONE HYDROCHLORIDE. [Suspect]
     Active Substance: OXYCODONE HYDROCHLORIDE
     Indication: PRODUCT USED FOR UNKNOWN INDICATION
     Dosage: UNK
     Route: 065
  12. GLUCOSE [Concomitant]
     Active Substance: DEXTROSE
     Dosage: UNK
  13. PAROXETINE. [Suspect]
     Active Substance: PAROXETINE
     Indication: PRODUCT USED FOR UNKNOWN INDICATION
     Dosage: UNK
     Route: 065

REACTIONS (33)
  - Coagulopathy [Unknown]
  - Hypoxia [Unknown]
  - Serotonin syndrome [Unknown]
  - Thrombocytopenia [Unknown]
  - Delirium [Unknown]
  - Distributive shock [Unknown]
  - Hyperkalaemia [Unknown]
  - Hyperthermia [Unknown]
  - Respiratory acidosis [Unknown]
  - Respiratory depression [Unknown]
  - Septic shock [Unknown]
  - Oesophageal ulcer [Unknown]
  - Staphylococcal infection [Unknown]
  - Areflexia [Unknown]
  - Clonus [Unknown]
  - Escherichia infection [Unknown]
  - Eye disorder [Unknown]
  - Leukopenia [Unknown]
  - Memory impairment [Unknown]
  - Intentional overdose [Unknown]
  - Toxicity to various agents [Unknown]
  - Coma [Unknown]
  - Pneumonia [Unknown]
  - Pneumonia aspiration [Unknown]
  - Upper gastrointestinal haemorrhage [Unknown]
  - Anaemia [Unknown]
  - Extensor plantar response [Unknown]
  - Fatigue [Unknown]
  - Gastric ulcer [Unknown]
  - Sepsis [Unknown]
  - Cardiac arrest [Unknown]
  - Polyneuropathy [Unknown]
  - Respiratory disorder [Unknown]
